FAERS Safety Report 6829471-8 (Version None)
Quarter: 2010Q3

REPORT INFORMATION
  Report Type: 
  Country: None (occurrence: None)
  Receive Date: 20100709
  Receipt Date: 20070311
  Transmission Date: 20110219
  Serious: No
  Sender: FDA-Public Use
  Company Number: US-PFIZER INC-2007019998

PATIENT
  Sex: Female
  Weight: 61.23 kg

DRUGS (5)
  1. CHANTIX [Suspect]
     Indication: SMOKING CESSATION THERAPY
     Dates: start: 20070220
  2. COMMIT [Concomitant]
  3. NORVASC [Concomitant]
     Dates: start: 19970101
  4. ALL OTHER THERAPEUTIC PRODUCTS [Concomitant]
  5. VITAMINS [Concomitant]

REACTIONS (5)
  - FATIGUE [None]
  - LETHARGY [None]
  - MALAISE [None]
  - PAIN [None]
  - SEDATION [None]
